FAERS Safety Report 7918488-8 (Version None)
Quarter: 2011Q4

REPORT INFORMATION
  Report Type: 
  Country: None (occurrence: None)
  Receive Date: 20111116
  Receipt Date: 20111110
  Transmission Date: 20120403
  Serious: Yes (Death, Congenital Anomaly, Other)
  Sender: FDA-Public Use
  Company Number: BR-ELI_LILLY_AND_COMPANY-BR201110005164

PATIENT

DRUGS (6)
  1. HUMULIN N [Suspect]
     Dosage: UNK, TID
     Route: 064
  2. HUMULIN N [Suspect]
     Indication: DIABETES MELLITUS
     Dosage: UNK, BID
     Route: 064
  3. GESTODENE AND ETHINYL ESTRADIOL [Concomitant]
     Dosage: UNK, UNKNOWN
     Route: 064
  4. HUMALOG [Suspect]
     Indication: DIABETES MELLITUS
     Dosage: UNK UNK, TID
     Route: 064
  5. HOMEOPATHIC PREPARATION [Concomitant]
     Indication: DIABETES MELLITUS
     Dosage: UNK, UNKNOWN
     Route: 064
  6. HUMALOG [Suspect]
     Dosage: 10 IU, BID
     Route: 064

REACTIONS (3)
  - BRAIN MALFORMATION [None]
  - INTRA-UTERINE DEATH [None]
  - FOETAL EXPOSURE DURING PREGNANCY [None]
